FAERS Safety Report 9092657 (Version 1)
Quarter: 2013Q1

REPORT INFORMATION
  Report Type: Spontaneous
  Country: US (occurrence: US)
  Receive Date: 20130131
  Receipt Date: 20130131
  Transmission Date: 20140127
  Serious: Yes (Other)
  Sender: FDA-Public Use
  Company Number: US-009507513-1301USA014255

PATIENT
  Sex: Female

DRUGS (4)
  1. SINGULAIR [Suspect]
  2. DULOXETINE HYDROCHLORIDE [Concomitant]
  3. ZOLPIDEM TARTRATE [Concomitant]
  4. ALPRAZOLAM [Concomitant]

REACTIONS (1)
  - Suicide attempt [Unknown]
